FAERS Safety Report 7046931-8 (Version None)
Quarter: 2010Q4

REPORT INFORMATION
  Report Type: 
  Country: None (occurrence: None)
  Receive Date: 20101015
  Receipt Date: 20101012
  Transmission Date: 20110411
  Serious: Yes (Other)
  Sender: FDA-Public Use
  Company Number: IE-BRISTOL-MYERS SQUIBB COMPANY-15333370

PATIENT

DRUGS (1)
  1. ABILIFY [Suspect]

REACTIONS (1)
  - OPTIC NEURITIS [None]
